FAERS Safety Report 26057754 (Version 1)
Quarter: 2025Q4

REPORT INFORMATION
  Report Type: Spontaneous
  Country: EU (occurrence: EU)
  Receive Date: 20251118
  Receipt Date: 20251118
  Transmission Date: 20260118
  Serious: Yes (Hospitalization, Other)
  Sender: AUROBINDO
  Company Number: EU-AFSSAPS-NY2025001725

PATIENT
  Age: 18 Year
  Sex: Male
  Weight: 82 kg

DRUGS (7)
  1. RISPERIDONE [Interacting]
     Active Substance: RISPERIDONE
     Indication: Psychotic disorder
     Dosage: 2 MILLIGRAM, ONCE A DAY
     Dates: start: 20230417, end: 20250419
  2. CANNABIDIOL [Interacting]
     Active Substance: CANNABIDIOL
     Indication: Erythromelalgia
     Dosage: 800 MILLIGRAM, 3 TIMES A DAY
     Dates: start: 20230905
  3. INOVELON 40 mg/ml, suspension buvable [Concomitant]
     Indication: Erythromelalgia
     Dosage: 400 MILLIGRAM, 3 TIMES A DAY
     Dates: start: 20230417
  4. LANSOPRAZOLE [Concomitant]
     Active Substance: LANSOPRAZOLE
     Indication: Oesophagitis
     Dosage: 30 MILLIGRAM, 3 TIMES A DAY
     Dates: start: 20210113
  5. FOLIC ACID [Concomitant]
     Active Substance: FOLIC ACID
     Indication: Vitamin supplementation
     Dosage: 5 MILLIGRAM, ONCE A DAY
     Dates: start: 20231230, end: 20250527
  6. CYAMEMAZINE [Concomitant]
     Active Substance: CYAMEMAZINE
     Indication: Psychotic disorder
     Dosage: 1 DOSAGE FORM, ONCE A DAY
     Dates: start: 20190702
  7. MELATONIN [Concomitant]
     Active Substance: MELATONIN
     Indication: Sleep disorder
     Dosage: 10 MILLIGRAM, ONCE A DAY
     Dates: start: 20190702

REACTIONS (2)
  - Hypothermia [Recovered/Resolved]
  - Drug interaction [Recovered/Resolved]

NARRATIVE: CASE EVENT DATE: 20230905
